FAERS Safety Report 4688764-3 (Version None)
Quarter: 2005Q2

REPORT INFORMATION
  Report Type: 
  Country: None (occurrence: None)
  Receive Date: 20050610
  Receipt Date: 20050610
  Transmission Date: 20051028
  Serious: Yes (Life-Threatening, Hospitalization)
  Sender: FDA-Public Use
  Company Number: None

PATIENT
  Sex: Male
  Weight: 54.4316 kg

DRUGS (5)
  1. DEPAKOTE [Suspect]
     Indication: AFFECTIVE DISORDER
     Dosage: 250 PO AM , TWO PO HS
     Route: 048
     Dates: start: 20050310, end: 20050506
  2. DEPAKOTE [Suspect]
     Indication: AUTISM
     Dosage: 250 PO AM , TWO PO HS
     Route: 048
     Dates: start: 20050310, end: 20050506
  3. RISPERDAL [Concomitant]
  4. FOSINOPRIL SODIUM [Concomitant]
  5. MULTI-VITAMIN [Concomitant]

REACTIONS (1)
  - HEPATIC FAILURE [None]
